FAERS Safety Report 21775602 (Version 1)
Quarter: 2022Q4

REPORT INFORMATION
  Report Type: Spontaneous
  Country: JP (occurrence: JP)
  Receive Date: 20221226
  Receipt Date: 20221226
  Transmission Date: 20230113
  Serious: Yes (Other)
  Sender: FDA-Public Use
  Company Number: JP-JNJFOC-20221242399

PATIENT
  Age: 8 Decade
  Sex: Female

DRUGS (3)
  1. DARATUMUMAB [Suspect]
     Active Substance: DARATUMUMAB
     Indication: Product used for unknown indication
     Dosage: DOSE UNKNOWN
     Route: 058
     Dates: start: 202111
  2. LENALIDOMIDE [Suspect]
     Active Substance: LENALIDOMIDE
     Dosage: DOSE UNKNOWN
     Route: 048
     Dates: start: 202111
  3. DEXAMETHASONE [Suspect]
     Active Substance: DEXAMETHASONE
     Dosage: DOSE UNKNOWN
     Route: 065
     Dates: start: 202111

REACTIONS (1)
  - Gastrointestinal perforation [Unknown]

NARRATIVE: CASE EVENT DATE: 20221219
